FAERS Safety Report 4524313-8 (Version None)
Quarter: 2004Q4

REPORT INFORMATION
  Report Type: 
  Country: None (occurrence: None)
  Receive Date: 20041119
  Receipt Date: 20040913
  Transmission Date: 20050328
  Serious: Yes (Hospitalization)
  Sender: FDA-Public Use
  Company Number: 209109

PATIENT
  Age: 34 Year
  Sex: Female

DRUGS (1)
  1. RAPTIVA [Suspect]
     Indication: PSORIASIS
     Dosage: 0.9 MG, 1/WEEK, SUBCUTANEOUS
     Route: 058
     Dates: start: 20040101, end: 20040801

REACTIONS (2)
  - JOINT SWELLING [None]
  - PYREXIA [None]
